FAERS Safety Report 15583072 (Version 3)
Quarter: 2018Q4

REPORT INFORMATION
  Report Type: Spontaneous
  Country: FR (occurrence: FR)
  Receive Date: 20181103
  Receipt Date: 20181221
  Transmission Date: 20190205
  Serious: Yes (Death, Hospitalization)
  Sender: FDA-Public Use
  Company Number: FR-SUN PHARMACEUTICAL INDUSTRIES LTD-2018RR-190019

PATIENT
  Age: 83 Year
  Sex: Male
  Weight: 91 kg

DRUGS (10)
  1. PRODINAN [Suspect]
     Active Substance: HERBALS\SAW PALMETTO
     Indication: BENIGN PROSTATIC HYPERPLASIA
     Dosage: UNK
     Route: 048
     Dates: end: 20180919
  2. JOSIR L.P. 0,4 MG, MICROGRANULES A LIBERATION PROLONGEE EN GELULE [Suspect]
     Active Substance: TAMSULOSIN HYDROCHLORIDE
     Indication: BENIGN PROSTATIC HYPERPLASIA
     Dosage: 0.4 MG, DAILY
     Route: 048
     Dates: end: 20180909
  3. PREVISCAN 20 MG, COMPRIME SECABLE [Suspect]
     Active Substance: FLUINDIONE
     Dosage: 20 MILLIGRAM, QD
     Route: 048
     Dates: end: 20180919
  4. WARFARINE SODIQUE [Suspect]
     Active Substance: WARFARIN SODIUM
     Indication: ATRIAL FIBRILLATION
     Dosage: UNK
     Route: 048
     Dates: start: 20180919
  5. XATRAL [Suspect]
     Active Substance: ALFUZOSIN
     Indication: BENIGN PROSTATIC HYPERPLASIA
     Dosage: UNK
     Route: 048
     Dates: start: 20180919
  6. ALLOPURINOL. [Suspect]
     Active Substance: ALLOPURINOL
     Indication: GOUT
     Dosage: UNK
     Route: 048
     Dates: end: 20181003
  7. PERMIXON 160 MG, GELULE [Suspect]
     Active Substance: HERBALS\SAW PALMETTO
     Indication: BENIGN PROSTATIC HYPERPLASIA
     Dosage: 160 MILLIGRAM
     Route: 048
     Dates: end: 20180919
  8. PREVISCAN 20 MG, COMPRIME SECABLE [Suspect]
     Active Substance: FLUINDIONE
     Indication: ATRIAL FIBRILLATION
     Dosage: 5 MG, DAILY
     Route: 048
     Dates: end: 20180919
  9. AERIUS (DESLORATADINE) [Suspect]
     Active Substance: DESLORATADINE
     Indication: PRURITUS
     Dosage: 5 MG, DAILY
     Route: 048
     Dates: start: 20180905, end: 20181007
  10. CABOMETYX [Suspect]
     Active Substance: CABOZANTINIB S-MALATE
     Indication: RENAL CANCER METASTATIC
     Dosage: 60 MG, DAILY
     Route: 048
     Dates: start: 2017, end: 20181003

REACTIONS (6)
  - Hallucination [Recovered/Resolved]
  - Purpura [Not Recovered/Not Resolved]
  - Oedema [Not Recovered/Not Resolved]
  - Confusional state [Recovered/Resolved]
  - Pruritus [Not Recovered/Not Resolved]
  - Eosinophilia [Not Recovered/Not Resolved]

NARRATIVE: CASE EVENT DATE: 20180803
